FAERS Safety Report 25072720 (Version 3)
Quarter: 2025Q2

REPORT INFORMATION
  Report Type: Report from Study
  Country: US (occurrence: US)
  Receive Date: 20250313
  Receipt Date: 20250424
  Transmission Date: 20250716
  Serious: Yes (Other)
  Sender: ABBVIE
  Company Number: US-ABBVIE-6173324

PATIENT
  Age: 77 Year
  Sex: Female
  Weight: 73 kg

DRUGS (2)
  1. ARMOUR THYROID [Suspect]
     Active Substance: THYROID, PORCINE
     Indication: Hypothyroidism
     Dosage: FORM STRENGTH: 60 MILLIGRAM
     Route: 048
     Dates: start: 2005
  2. JANTOVEN [Concomitant]
     Active Substance: WARFARIN SODIUM
     Indication: Anticoagulant therapy

REACTIONS (8)
  - Dry age-related macular degeneration [Not Recovered/Not Resolved]
  - Mass [Not Recovered/Not Resolved]
  - Cataract [Unknown]
  - Blindness [Recovered/Resolved]
  - Macular degeneration [Unknown]
  - Vitreous floaters [Unknown]
  - Neovascular age-related macular degeneration [Not Recovered/Not Resolved]
  - Glaucoma [Unknown]

NARRATIVE: CASE EVENT DATE: 20180101
